FAERS Safety Report 18606427 (Version 9)
Quarter: 2022Q4

REPORT INFORMATION
  Report Type: Spontaneous
  Country: US (occurrence: US)
  Receive Date: 20201211
  Receipt Date: 20221107
  Transmission Date: 20230112
  Serious: Yes (Other)
  Sender: FDA-Public Use
  Company Number: US-PFIZER INC-2020485980

PATIENT
  Age: 68 Year
  Sex: Female
  Weight: 80.74 kg

DRUGS (4)
  1. PREMARIN [Suspect]
     Active Substance: ESTROGENS, CONJUGATED
     Indication: Atrophic vulvovaginitis
     Dosage: 0.5 G, 2X/WEEK
  2. PREMARIN [Suspect]
     Active Substance: ESTROGENS, CONJUGATED
     Indication: Urinary tract infection
     Dosage: WHEN HAS ULTRASOUND, IS DIRECTED TO USE IT EVERY DAY THE WEEK BEFORE
  3. PREMARIN [Suspect]
     Active Substance: ESTROGENS, CONJUGATED
     Dosage: USE IT ONCE A WEEK
  4. PREMARIN [Suspect]
     Active Substance: ESTROGENS, CONJUGATED
     Dosage: UNK UNK, 2X/WEEK

REACTIONS (10)
  - Urinary tract infection [Recovered/Resolved]
  - Device issue [Unknown]
  - Wrong technique in device usage process [Unknown]
  - Off label use [Unknown]
  - Off label use [Unknown]
  - Expired product administered [Not Recovered/Not Resolved]
  - Intentional product misuse [Unknown]
  - Kyphosis [Unknown]
  - Body height decreased [Unknown]
  - Vulvovaginal burning sensation [Unknown]
